FAERS Safety Report 25940100 (Version 2)
Quarter: 2025Q4

REPORT INFORMATION
  Report Type: Spontaneous
  Country: JP (occurrence: JP)
  Receive Date: 20251020
  Receipt Date: 20251222
  Transmission Date: 20260118
  Serious: Yes (Death, Life-Threatening, Other)
  Sender: ASTELLAS
  Company Number: JP-ASTELLAS-2025-AER-057393

PATIENT
  Age: 8 Decade
  Sex: Female

DRUGS (2)
  1. PADCEV [Suspect]
     Active Substance: ENFORTUMAB VEDOTIN-EJFV
     Indication: Transitional cell carcinoma metastatic
     Dosage: ONCE WEEKLY, ADMINISTERED FOR 2 CONSECUTIVE WEEKS, WITH A 3RD WEEK REST
     Route: 042
     Dates: start: 202510, end: 202510
  2. PEMBROLIZUMAB [Concomitant]
     Active Substance: PEMBROLIZUMAB
     Indication: Transitional cell carcinoma metastatic
     Route: 065

REACTIONS (1)
  - Cytokine release syndrome [Fatal]

NARRATIVE: CASE EVENT DATE: 20251001
